FAERS Safety Report 12764901 (Version 1)
Quarter: 2016Q3

REPORT INFORMATION
  Report Type: Spontaneous
  Country: US (occurrence: US)
  Receive Date: 20160921
  Receipt Date: 20160921
  Transmission Date: 20161109
  Serious: Yes (Hospitalization, Other)
  Sender: FDA-Public Use
  Company Number: US-ALVOGEN-2016-ALVOGEN-028586

PATIENT
  Age: 66 Year
  Sex: Male
  Weight: 136.08 kg

DRUGS (4)
  1. CARVEDILOL. [Suspect]
     Active Substance: CARVEDILOL
     Indication: PRODUCT USED FOR UNKNOWN INDICATION
     Dates: start: 201603
  2. LISINOPRIL. [Suspect]
     Active Substance: LISINOPRIL
     Indication: PRODUCT USED FOR UNKNOWN INDICATION
  3. CARVEDILOL. [Suspect]
     Active Substance: CARVEDILOL
     Indication: PRODUCT USED FOR UNKNOWN INDICATION
  4. REGRANEX [Suspect]
     Active Substance: BECAPLERMIN
     Indication: DIABETIC ULCER
     Dates: start: 201606

REACTIONS (9)
  - Renal disorder [Recovering/Resolving]
  - Chest discomfort [Recovering/Resolving]
  - Drug intolerance [Unknown]
  - Lung disorder [Recovering/Resolving]
  - Prostatomegaly [Recovering/Resolving]
  - Thrombosis [Recovering/Resolving]
  - Fluid imbalance [Recovering/Resolving]
  - Dehydration [Recovering/Resolving]
  - Wound infection staphylococcal [Recovering/Resolving]

NARRATIVE: CASE EVENT DATE: 2016
